FAERS Safety Report 20760583 (Version 3)
Quarter: 2022Q2

REPORT INFORMATION
  Report Type: Other
  Country: US (occurrence: None)
  Receive Date: 20220428
  Receipt Date: 20220521
  Transmission Date: 20220721
  Serious: No
  Sender: FDA-Public Use
  Company Number: US-ROCHE-3084186

PATIENT
  Sex: Male

DRUGS (1)
  1. OCREVUS [Suspect]
     Active Substance: OCRELIZUMAB
     Indication: Multiple sclerosis
     Dosage: DATE OF TREATMENT: 18/JUN/2019, 09/DEC/2019, 09/DEC/2020, 30/JUN/2021
     Route: 065
     Dates: start: 20190604

REACTIONS (2)
  - Somnolence [Not Recovered/Not Resolved]
  - COVID-19 [Unknown]
